FAERS Safety Report 17495769 (Version 4)
Quarter: 2020Q2

REPORT INFORMATION
  Report Type: Spontaneous
  Country: US (occurrence: US)
  Receive Date: 20200304
  Receipt Date: 20200608
  Transmission Date: 20200713
  Serious: No
  Sender: FDA-Public Use
  Company Number: US-PFIZER INC-2020095758

PATIENT
  Age: 51 Year
  Sex: Female
  Weight: 87.08 kg

DRUGS (1)
  1. FLECTOR [Suspect]
     Active Substance: DICLOFENAC EPOLAMINE
     Indication: PAIN
     Dosage: 10 MG, 2X/DAY
     Dates: start: 2019

REACTIONS (1)
  - Thinking abnormal [Unknown]
